FAERS Safety Report 15632369 (Version 2)
Quarter: 2018Q4

REPORT INFORMATION
  Report Type: Report from Study
  Country: US (occurrence: US)
  Receive Date: 20181119
  Receipt Date: 20181126
  Transmission Date: 20190205
  Serious: Yes (Other)
  Sender: FDA-Public Use
  Company Number: US-ALEXION PHARMACEUTICALS INC.-A201814964

PATIENT
  Sex: Female

DRUGS (1)
  1. SOLIRIS [Suspect]
     Active Substance: ECULIZUMAB
     Indication: ATYPICAL HAEMOLYTIC URAEMIC SYNDROME
     Dosage: UNK
     Route: 065
     Dates: start: 20120720

REACTIONS (16)
  - Affective disorder [Unknown]
  - Thinking abnormal [Unknown]
  - Hypokalaemia [Unknown]
  - Aphasia [Unknown]
  - Vomiting [Unknown]
  - Nausea [Unknown]
  - Insomnia [Unknown]
  - Lupus-like syndrome [Unknown]
  - Joint swelling [Unknown]
  - Blood pressure decreased [Unknown]
  - Memory impairment [Unknown]
  - Vitamin D deficiency [Unknown]
  - Headache [Unknown]
  - Fatigue [Unknown]
  - Glomerular filtration rate decreased [Unknown]
  - Blood creatinine increased [Unknown]

NARRATIVE: CASE EVENT DATE: 20180226
